FAERS Safety Report 5326313-7 (Version None)
Quarter: 2007Q2

REPORT INFORMATION
  Report Type: 
  Country: None (occurrence: None)
  Receive Date: 20070514
  Receipt Date: 20070514
  Transmission Date: 20071010
  Serious: Yes (Hospitalization)
  Sender: FDA-Public Use
  Company Number: None

PATIENT
  Age: 84 Year
  Sex: Male

DRUGS (2)
  1. ARIXTRA [Suspect]
     Indication: ATRIAL FIBRILLATION
     Dosage: 7.5 MG Q24H SQ
     Route: 058
     Dates: start: 20070209, end: 20070212
  2. ARIXTRA [Suspect]
     Dosage: 2.5 MG Q 24H SQ
     Route: 058
     Dates: start: 20070212, end: 20070220

REACTIONS (1)
  - RETROPERITONEAL HAEMORRHAGE [None]
